FAERS Safety Report 8037858-3 (Version None)
Quarter: 2012Q1

REPORT INFORMATION
  Report Type: 
  Country: None (occurrence: None)
  Receive Date: 20120111
  Receipt Date: 20120103
  Transmission Date: 20120608
  Serious: Yes (Death, Life-Threatening, Hospitalization)
  Sender: FDA-Public Use
  Company Number: PHHY2012FR001943

PATIENT
  Age: 77 Year
  Sex: Male

DRUGS (8)
  1. PANTOPRAZOLE [Concomitant]
     Dosage: 20 MG, UNK
  2. DESLORATADINE [Concomitant]
     Dosage: UNK
     Dates: start: 20110916
  3. EMEND [Concomitant]
     Dosage: 125 MG, UNK
     Dates: start: 20110916
  4. ZANTAC [Concomitant]
     Dosage: UNK
     Dates: start: 20110916
  5. DEXTROSE-SODIUM CITRATE-SODIUM CHLORIDE INJ [Concomitant]
     Dosage: UNK
     Dates: start: 20110916
  6. ATARAX [Concomitant]
     Dosage: UNK
     Dates: start: 20110916
  7. PACLITAXEL [Suspect]
     Indication: LUNG SQUAMOUS CELL CARCINOMA STAGE UNSPECIFIED
     Dosage: 139 MG, UNK
     Route: 042
     Dates: start: 20110916, end: 20110916
  8. ZOFRAN [Concomitant]
     Dosage: UNK
     Dates: start: 20110916

REACTIONS (5)
  - DEATH [None]
  - CARDIO-RESPIRATORY ARREST [None]
  - CHOKING SENSATION [None]
  - ANAPHYLACTIC SHOCK [None]
  - CHEST PAIN [None]
